FAERS Safety Report 17713493 (Version 2)
Quarter: 2021Q1

REPORT INFORMATION
  Report Type: Report from Study
  Country: GB (occurrence: GB)
  Receive Date: 20200427
  Receipt Date: 20210129
  Transmission Date: 20210419
  Serious: No
  Sender: FDA-Public Use
  Company Number: GB-SAMSUNG BIOEPIS-SB-2020-14425

PATIENT
  Age: 69 Year
  Sex: Female

DRUGS (1)
  1. IMRALDI [Suspect]
     Active Substance: ADALIMUMAB
     Indication: PSORIATIC ARTHROPATHY
     Route: 058

REACTIONS (3)
  - Malaise [Recovered/Resolved]
  - Pain [Recovered/Resolved]
  - Nasopharyngitis [Recovered/Resolved]
